FAERS Safety Report 17930198 (Version 4)
Quarter: 2020Q3

REPORT INFORMATION
  Report Type: Spontaneous
  Country: US (occurrence: US)
  Receive Date: 20200623
  Receipt Date: 20200804
  Transmission Date: 20201103
  Serious: No
  Sender: FDA-Public Use
  Company Number: US-JNJFOC-20200625916

PATIENT
  Age: 49 Year
  Sex: Male
  Weight: 95.34 kg

DRUGS (4)
  1. ROSUVASTATIN. [Concomitant]
     Active Substance: ROSUVASTATIN
     Indication: BLOOD TRIGLYCERIDES INCREASED
     Route: 065
  2. ESCITALOPRAM [Concomitant]
     Active Substance: ESCITALOPRAM OXALATE
     Indication: GENERALISED ANXIETY DISORDER
     Route: 065
  3. TREMFYA [Suspect]
     Active Substance: GUSELKUMAB
     Indication: PSORIASIS
     Route: 058
     Dates: start: 202006
  4. CETIRIZINE [Concomitant]
     Active Substance: CETIRIZINE HYDROCHLORIDE
     Indication: SEASONAL ALLERGY
     Route: 065

REACTIONS (4)
  - Product dose omission issue [Unknown]
  - Product design issue [Unknown]
  - Wrong technique in device usage process [Unknown]
  - Syringe issue [Unknown]

NARRATIVE: CASE EVENT DATE: 20200620
